FAERS Safety Report 10896799 (Version 1)
Quarter: 2015Q1

REPORT INFORMATION
  Report Type: Spontaneous
  Country: US (occurrence: US)
  Receive Date: 20150309
  Receipt Date: 20150309
  Transmission Date: 20150721
  Serious: Yes (Death)
  Sender: FDA-Public Use
  Company Number: US-BANPHARM-20153678

PATIENT
  Age: 26 Year
  Sex: Female

DRUGS (6)
  1. HEROIN [Suspect]
     Active Substance: DIACETYLMORPHINE
  2. DILTIAZEM [Suspect]
     Active Substance: DILTIAZEM
  3. LIDOCAINE. [Suspect]
     Active Substance: LIDOCAINE
  4. COCAINE [Suspect]
     Active Substance: COCAINE
  5. DIPHENHYDRAMINE UNKNOWN PRODUCT [Suspect]
     Active Substance: DIPHENHYDRAMINE
  6. QUININE [Suspect]
     Active Substance: QUININE

REACTIONS (1)
  - Drug abuse [Fatal]
